FAERS Safety Report 17353921 (Version 1)
Quarter: 2020Q1

REPORT INFORMATION
  Report Type: Spontaneous
  Country: CZ (occurrence: CZ)
  Receive Date: 20200131
  Receipt Date: 20200131
  Transmission Date: 20200409
  Serious: Yes (Other)
  Sender: FDA-Public Use
  Company Number: CZ-SUN PHARMACEUTICAL INDUSTRIES LTD-2020R1-234662

PATIENT
  Age: 30 Year
  Sex: Male

DRUGS (4)
  1. CLONAZEPAM. [Suspect]
     Active Substance: CLONAZEPAM
     Indication: GENERALISED TONIC-CLONIC SEIZURE
     Dosage: 2-3 MG/DAY
     Route: 065
     Dates: end: 2015
  2. CARBAMAZEPINE. [Suspect]
     Active Substance: CARBAMAZEPINE
     Indication: GENERALISED TONIC-CLONIC SEIZURE
     Dosage: 600 MILLIGRAM, DAILY
     Route: 065
     Dates: end: 2015
  3. LAMOTRIGINE. [Suspect]
     Active Substance: LAMOTRIGINE
     Indication: GENERALISED TONIC-CLONIC SEIZURE
     Dosage: 100 MILLIGRAM, DAILY
     Route: 065
     Dates: end: 2015
  4. VALPROIC ACID. [Suspect]
     Active Substance: VALPROIC ACID
     Indication: GENERALISED TONIC-CLONIC SEIZURE
     Dosage: 2000 MILLIGRAM, DAILY
     Route: 065
     Dates: end: 2015

REACTIONS (10)
  - Impaired quality of life [Unknown]
  - Depression [Recovering/Resolving]
  - Treatment noncompliance [Unknown]
  - Tremor [Recovering/Resolving]
  - Alopecia [Recovering/Resolving]
  - Insomnia [Recovering/Resolving]
  - Multiple injuries [Recovering/Resolving]
  - Drug dependence [Unknown]
  - Osteopenia [Recovering/Resolving]
  - Weight increased [Recovering/Resolving]
